FAERS Safety Report 14759300 (Version 1)
Quarter: 2018Q2

REPORT INFORMATION
  Report Type: Spontaneous
  Country: JP (occurrence: JP)
  Receive Date: 20180413
  Receipt Date: 20180413
  Transmission Date: 20180711
  Serious: Yes (Other)
  Sender: FDA-Public Use
  Company Number: JP-PFIZER INC-2018146737

PATIENT
  Age: 49 Year
  Sex: Female

DRUGS (4)
  1. LETROZOLE. [Concomitant]
     Active Substance: LETROZOLE
     Dosage: UNK
  2. ACETAMINOPHEN. [Concomitant]
     Active Substance: ACETAMINOPHEN
     Indication: PAIN
     Dosage: 1600 MG, AS NEEDED
  3. IBRANCE [Suspect]
     Active Substance: PALBOCICLIB
     Dosage: UNK
     Route: 048
  4. SENNOSIDE [Concomitant]
     Active Substance: SENNOSIDES
     Dosage: UNK

REACTIONS (3)
  - Cytopenia [Unknown]
  - Abdominal distension [Unknown]
  - Pyrexia [Unknown]
